FAERS Safety Report 9118347 (Version 1)
Quarter: 2013Q1

REPORT INFORMATION
  Report Type: Spontaneous
  Country: US (occurrence: None)
  Receive Date: 20130221
  Receipt Date: 20130221
  Transmission Date: 20140127
  Serious: No
  Sender: FDA-Public Use
  Company Number: None

PATIENT
  Age: 64 Year
  Sex: Male
  Weight: 87.5 kg

DRUGS (1)
  1. METHADONE [Suspect]
     Indication: PAIN
     Route: 048
     Dates: start: 20121205, end: 20121211

REACTIONS (1)
  - Electrocardiogram QT prolonged [None]
